FAERS Safety Report 4380078-4 (Version None)
Quarter: 2004Q2

REPORT INFORMATION
  Report Type: 
  Country: None (occurrence: None)
  Receive Date: 20040617
  Receipt Date: 20040312
  Transmission Date: 20050107
  Serious: Yes (Hospitalization, Disabling, Other)
  Sender: FDA-Public Use
  Company Number: US-MERCK-0403USA01342

PATIENT
  Age: 53 Year
  Sex: Male
  Weight: 80 kg

DRUGS (3)
  1. CEFTIN [Concomitant]
     Route: 065
  2. GUAIFENESIN [Concomitant]
     Route: 065
  3. VIOXX [Suspect]
     Indication: ARTHRITIS
     Route: 048
     Dates: start: 20000301, end: 20030301

REACTIONS (8)
  - ATHEROSCLEROSIS [None]
  - CEREBROVASCULAR ACCIDENT [None]
  - COUGH [None]
  - DILATATION ATRIAL [None]
  - EMOTIONAL DISTRESS [None]
  - MENINGIOMA [None]
  - MYOCARDIAL INFARCTION [None]
  - RETINAL ARTERY OCCLUSION [None]
